FAERS Safety Report 7733064-8 (Version None)
Quarter: 2011Q3

REPORT INFORMATION
  Report Type: 
  Country: None (occurrence: None)
  Receive Date: 20110907
  Receipt Date: 20110902
  Transmission Date: 20111222
  Serious: Yes (Disabling, Other)
  Sender: FDA-Public Use
  Company Number: GB-PFIZER INC-2011206749

PATIENT
  Age: 82 Year
  Sex: Female
  Weight: 70 kg

DRUGS (10)
  1. MELOXICAM [Concomitant]
     Dosage: UNK
     Dates: start: 20110512
  2. NAPROXEN [Concomitant]
     Dosage: UNK
     Dates: start: 20110707
  3. LISINOPRIL [Concomitant]
     Dosage: UNK
     Dates: start: 20110609
  4. TRAMADOL [Concomitant]
     Dosage: UNK
     Dates: start: 20110628, end: 20110629
  5. ATENOLOL [Concomitant]
     Dosage: UNK
     Dates: start: 20110609
  6. CLOBETASOL PROPIONATE [Concomitant]
     Dosage: UNK
     Dates: start: 20110512
  7. DICLOFENAC SODIUM [Concomitant]
     Dosage: UNK
     Dates: start: 20110512
  8. AMLODIPINE BESYLATE [Suspect]
     Dosage: UNK
     Dates: start: 20110805
  9. QUININE [Concomitant]
     Dosage: UNK
     Dates: start: 20110510
  10. VERAPAMIL HYDROCHLORIDE [Concomitant]
     Dosage: UNK
     Dates: start: 20110512

REACTIONS (4)
  - NAUSEA [None]
  - DIZZINESS [None]
  - SYNCOPE [None]
  - VISION BLURRED [None]
